FAERS Safety Report 16567314 (Version 1)
Quarter: 2019Q3

REPORT INFORMATION
  Report Type: Spontaneous
  Country: US (occurrence: US)
  Receive Date: 20190712
  Receipt Date: 20190712
  Transmission Date: 20191004
  Serious: No
  Sender: FDA-Public Use
  Company Number: US-ASTRAZENECA-2019SE88168

PATIENT
  Age: 23493 Day
  Sex: Male
  Weight: 122.5 kg

DRUGS (2)
  1. BYDUREON BCISE [Suspect]
     Active Substance: EXENATIDE
     Indication: TYPE 2 DIABETES MELLITUS
     Route: 058
     Dates: start: 201905
  2. OXYCODONE [Concomitant]
     Active Substance: OXYCODONE

REACTIONS (11)
  - Device leakage [Unknown]
  - Device malfunction [Unknown]
  - Injection site pain [Recovered/Resolved]
  - Wrong technique in device usage process [Unknown]
  - Injection site injury [Recovered/Resolved]
  - Pain in extremity [Recovered/Resolved]
  - Injection site haemorrhage [Recovered/Resolved]
  - Product contamination physical [Unknown]
  - Injection site discolouration [Unknown]
  - Product closure removal difficult [Unknown]
  - Anxiety [Unknown]

NARRATIVE: CASE EVENT DATE: 201905
